FAERS Safety Report 17031576 (Version 1)
Quarter: 2019Q4

REPORT INFORMATION
  Report Type: Spontaneous
  Country: US (occurrence: US)
  Receive Date: 20191113
  Receipt Date: 20191113
  Transmission Date: 20200122
  Serious: No
  Sender: FDA-Public Use
  Company Number: None

PATIENT
  Age: 51 Year
  Sex: Female
  Weight: 83.25 kg

DRUGS (22)
  1. PANTOPRAZOLE [Concomitant]
     Active Substance: PANTOPRAZOLE
  2. POLYETHYLENE GLYCOL 3350 POWDER [Concomitant]
     Active Substance: POLYETHYLENE GLYCOL 3350
  3. OSMOTIC LAXATIVE [Concomitant]
     Active Substance: POLYETHYLENE GLYCOL 3350
  4. DILTIAZEM. [Concomitant]
     Active Substance: DILTIAZEM
  5. LITHIUM CARBONATE ER [Concomitant]
     Active Substance: LITHIUM CARBONATE
  6. ESTROGEN CREAM [Concomitant]
  7. LACTILLUS ACIDOPHILUS [Concomitant]
  8. ADAPALENE. [Concomitant]
     Active Substance: ADAPALENE
  9. UREA. [Concomitant]
     Active Substance: UREA
  10. GUANFACINE 1MG TABLETS [Suspect]
     Active Substance: GUANFACINE HYDROCHLORIDE
     Indication: ANXIETY
     Dosage: ?          QUANTITY:1 TABLET(S);?
     Route: 048
     Dates: start: 20191001, end: 20191112
  11. GUANFACINE 1MG TABLETS [Suspect]
     Active Substance: GUANFACINE HYDROCHLORIDE
     Indication: ATTENTION DEFICIT/HYPERACTIVITY DISORDER
     Dosage: ?          QUANTITY:1 TABLET(S);?
     Route: 048
     Dates: start: 20191001, end: 20191112
  12. VESICARE [Concomitant]
     Active Substance: SOLIFENACIN SUCCINATE
  13. CHLORPROMAZINE. [Concomitant]
     Active Substance: CHLORPROMAZINE
  14. FLUORIDE TOOTHPASTE [Concomitant]
     Active Substance: SODIUM FLUORIDE
  15. VITAMIN D3/CHOLECALCIFEROL [Concomitant]
  16. CENTRUM MULTIVITAMIN [Concomitant]
  17. VITAMIN B12 [Concomitant]
     Active Substance: CYANOCOBALAMIN
  18. LEVOTHYROXINE. [Concomitant]
     Active Substance: LEVOTHYROXINE
  19. ESCITALOPRAM [Concomitant]
     Active Substance: ESCITALOPRAM OXALATE
  20. GABAPENTIN. [Concomitant]
     Active Substance: GABAPENTIN
  21. ESTRADIOL. [Concomitant]
     Active Substance: ESTRADIOL
  22. DOCUSATE SODIUM. [Concomitant]
     Active Substance: DOCUSATE SODIUM

REACTIONS (3)
  - Sleep disorder [None]
  - Headache [None]
  - Flatulence [None]

NARRATIVE: CASE EVENT DATE: 20191001
